FAERS Safety Report 19690811 (Version 1)
Quarter: 2021Q3

REPORT INFORMATION
  Report Type: Spontaneous
  Country: US (occurrence: US)
  Receive Date: 20210812
  Receipt Date: 20210812
  Transmission Date: 20211014
  Serious: No
  Sender: FDA-Public Use
  Company Number: US-VYNE PHARMACEUTICALS INC-2021-VYNE-US003299

PATIENT

DRUGS (4)
  1. KETOCONAZOLE. [Concomitant]
     Active Substance: KETOCONAZOLE
     Indication: SEBORRHOEIC DERMATITIS
     Dosage: APPLIED TO THE SCALP AS DIRECTED
     Route: 065
  2. AMZEEQ [Suspect]
     Active Substance: MINOCYCLINE HYDROCHLORIDE
     Indication: ACNE
     Dosage: UNK
     Route: 061
     Dates: start: 20210303, end: 20210415
  3. EPIDUO [Suspect]
     Active Substance: ADAPALENE\BENZOYL PEROXIDE
     Indication: ACNE
     Dosage: APPLIED TO AFFECTED AREAS AS DIRECTED
     Route: 061
     Dates: start: 20210303
  4. BETAMETHASONE. [Concomitant]
     Active Substance: BETAMETHASONE
     Indication: SEBORRHOEIC DERMATITIS
     Dosage: APPLIED TO THE SCALP AS DIRECTED
     Route: 065

REACTIONS (2)
  - Application site discolouration [Recovered/Resolved]
  - Product residue present [Recovered/Resolved]
